FAERS Safety Report 4555045-8 (Version None)
Quarter: 2004Q4

REPORT INFORMATION
  Report Type: 
  Country: None (occurrence: None)
  Receive Date: 20041217
  Receipt Date: 20040811
  Transmission Date: 20050328
  Serious: No
  Sender: FDA-Public Use
  Company Number: 2004-BP-04780BP

PATIENT
  Age: 46 Year
  Sex: Male
  Weight: 199.2 kg

DRUGS (7)
  1. SPIRIVA HANDIHANDLER (TIOTROPIUM BROMIDE) [Suspect]
     Indication: CHRONIC OBSTRUCTIVE AIRWAYS DISEASE
     Dosage: 18 MCG (18 MCG, 1 IN 1 D), IH
     Route: 055
     Dates: start: 20040601
  2. WELLBUTRIN [Concomitant]
  3. LITHIUM CARBONATE [Concomitant]
  4. PAXIL [Concomitant]
  5. TRAZODONE (TRAZODONE) [Concomitant]
  6. ALBUTEROL [Concomitant]
  7. FLOVENT [Concomitant]

REACTIONS (5)
  - MOUTH PLAQUE [None]
  - NECROTISING ULCERATIVE GINGIVOSTOMATITIS [None]
  - ORAL PAIN [None]
  - PHARYNGITIS [None]
  - STOMATITIS [None]
